FAERS Safety Report 17018595 (Version 1)
Quarter: 2019Q4

REPORT INFORMATION
  Report Type: Report from Study
  Country: None (occurrence: US)
  Receive Date: 20191111
  Receipt Date: 20191111
  Transmission Date: 20200122
  Serious: Yes (Hospitalization, Other)
  Sender: FDA-Public Use
  Company Number: US-ABBVIE-19K-163-2939943-00

PATIENT
  Age: 79 Year
  Sex: Female
  Weight: 83.54 kg

DRUGS (6)
  1. ZOCOR [Concomitant]
     Active Substance: SIMVASTATIN
     Indication: BLOOD CHOLESTEROL ABNORMAL
     Route: 065
  2. HUMIRA [Suspect]
     Active Substance: ADALIMUMAB
     Indication: RHEUMATOID ARTHRITIS
     Route: 058
     Dates: start: 201708, end: 20190823
  3. LASIX [Concomitant]
     Active Substance: FUROSEMIDE
     Indication: DIURETIC THERAPY
     Route: 065
  4. THYROXINE [Concomitant]
     Active Substance: LEVOTHYROXINE
     Indication: DIURETIC THERAPY
     Route: 065
  5. METOPROLOL. [Concomitant]
     Active Substance: METOPROLOL
     Indication: BLOOD PRESSURE MANAGEMENT
     Route: 065
  6. HUMIRA [Suspect]
     Active Substance: ADALIMUMAB
     Indication: ANKYLOSING SPONDYLITIS

REACTIONS (8)
  - Localised infection [Recovering/Resolving]
  - Femur fracture [Recovered/Resolved]
  - Fall [Recovered/Resolved]
  - Walking aid user [Unknown]
  - Device related infection [Unknown]
  - Blister infected [Recovering/Resolving]
  - Blister [Recovered/Resolved]
  - Wheelchair user [Unknown]

NARRATIVE: CASE EVENT DATE: 2019
